FAERS Safety Report 10328833 (Version 18)
Quarter: 2016Q1

REPORT INFORMATION
  Report Type: Spontaneous
  Country: US (occurrence: US)
  Receive Date: 20140721
  Receipt Date: 20160218
  Transmission Date: 20160525
  Serious: Yes (Death, Hospitalization, Other)
  Sender: FDA-Public Use
  Company Number: US-PFIZER INC-2014198374

PATIENT
  Age: 67 Year
  Sex: Male
  Weight: 92 kg

DRUGS (17)
  1. NOVOLOG PEN [Concomitant]
     Dosage: UNK, AS NEEDED (ONLY IF GLUCOSE LEVELS REQUIRE DOSING)
  2. SUTENT [Suspect]
     Active Substance: SUNITINIB MALATE
     Dosage: 12.5 MG, DAILY
     Dates: start: 20150904, end: 2015
  3. SUTENT [Suspect]
     Active Substance: SUNITINIB MALATE
     Dosage: 37.5 MG, EVERY OTHER DAY
     Dates: start: 20150619, end: 2015
  4. CREON [Concomitant]
     Active Substance: PANCRELIPASE AMYLASE\PANCRELIPASE LIPASE\PANCRELIPASE PROTEASE
     Dosage: 24K, 1X/DAY
  5. COREG [Concomitant]
     Active Substance: CARVEDILOL
     Dosage: 6.5 MG, 2X/DAY (MORNING AND BEDTIME)
  6. ZANTAC [Concomitant]
     Active Substance: RANITIDINE HYDROCHLORIDE
  7. SUTENT [Suspect]
     Active Substance: SUNITINIB MALATE
     Dosage: 37.5 MG, DAILY
     Dates: start: 20150525, end: 20150618
  8. PANCREATIN [Concomitant]
     Active Substance: PANCRELIPASE
     Dosage: 325 MG, 1X/DAY (PM WITH DINNER MEAL )
  9. SUTENT [Suspect]
     Active Substance: SUNITINIB MALATE
     Dosage: 12.5 MG, DAILY
     Dates: start: 20140512, end: 20150123
  10. LEVEMIR PEN [Concomitant]
     Dosage: UNK, AS NEEDED (AT BEDTIME IF NEEDED (IF GLUCOSE IS ABOVE 150 BASELINE)]
  11. SUTENT [Suspect]
     Active Substance: SUNITINIB MALATE
     Dosage: 12.5 MG, DAILY
     Dates: start: 20150525, end: 20160127
  12. SANDOSTATIN [Concomitant]
     Active Substance: OCTREOTIDE ACETATE
     Dosage: UNK
  13. ATORVASTATIN [Concomitant]
     Active Substance: ATORVASTATIN
     Dosage: 5 MG, 1X/DAY (AT BEDTIME)
  14. VITAMIN B COMPLEX [Concomitant]
     Active Substance: CYANOCOBALAMIN\DEXPANTHENOL\NIACINAMIDE\PYRIDOXINE HYDROCHLORIDE\RIBOFLAVIN 5^-PHOSPHATE SODIUM\THIAMINE HYDROCHLORIDE\VITAMIN B COMPLEX
     Dosage: UNK, DAILY (AM WITH BREAKFAST)
  15. SUTENT [Suspect]
     Active Substance: SUNITINIB MALATE
     Indication: PANCREATIC NEUROENDOCRINE TUMOUR
     Dosage: 37.5 MG, 1X/DAY (AT BEDTIME)
     Dates: start: 20140512, end: 20150123
  16. SUTENT [Suspect]
     Active Substance: SUNITINIB MALATE
     Dosage: 25 MG, DAILY
     Dates: start: 2015
  17. BABY ASPIRIN [Concomitant]
     Active Substance: ASPIRIN
     Dosage: 85 MG, 1X/DAY (PM BED TIME)
     Dates: end: 201502

REACTIONS (26)
  - Asthenia [Unknown]
  - Febrile neutropenia [Unknown]
  - White blood cell count decreased [Not Recovered/Not Resolved]
  - Fatigue [Not Recovered/Not Resolved]
  - Dry skin [Recovered/Resolved]
  - Blood potassium decreased [Recovering/Resolving]
  - Hair colour changes [Recovered/Resolved]
  - Second primary malignancy [Fatal]
  - Neutropenia [Unknown]
  - Dyspepsia [Recovered/Resolved]
  - Pyrexia [Unknown]
  - Myelodysplastic syndrome [Fatal]
  - Haemoglobin decreased [Not Recovered/Not Resolved]
  - Liver disorder [Unknown]
  - Platelet count decreased [Recovering/Resolving]
  - Nausea [Not Recovered/Not Resolved]
  - Haematocrit decreased [Not Recovered/Not Resolved]
  - Red blood cell count decreased [Recovered/Resolved]
  - Weight decreased [Unknown]
  - Acute myeloid leukaemia [Fatal]
  - Diarrhoea [Recovering/Resolving]
  - Blood electrolytes decreased [Unknown]
  - Ascites [Unknown]
  - Blood glucose decreased [Not Recovered/Not Resolved]
  - Skin discolouration [Recovered/Resolved]
  - Bone marrow disorder [Unknown]

NARRATIVE: CASE EVENT DATE: 2014
